FAERS Safety Report 23664982 (Version 1)
Quarter: 2024Q1

REPORT INFORMATION
  Report Type: Report from Study
  Country: CA (occurrence: CA)
  Receive Date: 20240322
  Receipt Date: 20240322
  Transmission Date: 20240410
  Serious: Yes (Other)
  Sender: FDA-Public Use
  Company Number: CA-ABBVIE-5686860

PATIENT
  Age: 51 Year
  Sex: Male

DRUGS (1)
  1. HUMIRA [Suspect]
     Active Substance: ADALIMUMAB
     Indication: Crohn^s disease
     Dosage: LAST INJECTION - MARCH 16 (WAS SUPPOSED TO BE MARCH 15 - FORGOT); 40 MG EOW PFS; NO LOT/EXP (AT W...
     Route: 058
     Dates: start: 20210203

REACTIONS (2)
  - Obstruction [Unknown]
  - Arthralgia [Unknown]

NARRATIVE: CASE EVENT DATE: 20231201
